FAERS Safety Report 24260569 (Version 2)
Quarter: 2025Q3

REPORT INFORMATION
  Report Type: Spontaneous
  Country: CA (occurrence: CA)
  Receive Date: 20240828
  Receipt Date: 20250818
  Transmission Date: 20251020
  Serious: Yes (Other)
  Sender: SANDOZ
  Company Number: CA-002147023-PHHY2019CA161408

PATIENT
  Age: 47 Year
  Sex: Female

DRUGS (11)
  1. COSENTYX [Suspect]
     Active Substance: SECUKINUMAB
     Indication: Psoriatic arthropathy
     Dosage: 150 MG, QMO (SENSOREADY PEN)
     Route: 058
  2. COSENTYX [Suspect]
     Active Substance: SECUKINUMAB
     Dosage: 150 MG, QMO (SENSOREADY PEN)
     Route: 058
     Dates: start: 20191121
  3. COSENTYX [Suspect]
     Active Substance: SECUKINUMAB
     Dosage: 150 MG, Q2W
     Route: 058
  4. COSENTYX [Suspect]
     Active Substance: SECUKINUMAB
     Route: 058
  5. COSENTYX [Suspect]
     Active Substance: SECUKINUMAB
     Route: 058
  6. COSENTYX [Suspect]
     Active Substance: SECUKINUMAB
     Indication: Ankylosing spondylitis
     Route: 042
     Dates: start: 20190524
  7. COSENTYX [Suspect]
     Active Substance: SECUKINUMAB
     Route: 042
     Dates: start: 202008
  8. COSENTYX [Suspect]
     Active Substance: SECUKINUMAB
     Route: 065
  9. INDOMETHACIN [Suspect]
     Active Substance: INDOMETHACIN
     Indication: Product used for unknown indication
     Route: 065
  10. PIROXICAM [Concomitant]
     Active Substance: PIROXICAM
     Indication: Product used for unknown indication
     Dosage: 1 DOSAGE FORM, QD
     Route: 048
     Dates: start: 2016
  11. PLAQUENIL [Concomitant]
     Active Substance: HYDROXYCHLOROQUINE SULFATE
     Indication: Product used for unknown indication
     Dosage: 1 DOSAGE FORM, BID
     Route: 048
     Dates: start: 2012

REACTIONS (25)
  - Ear pain [Not Recovered/Not Resolved]
  - Dysphagia [Not Recovered/Not Resolved]
  - Oropharyngeal pain [Not Recovered/Not Resolved]
  - Cellulitis [Recovered/Resolved]
  - Erythema [Unknown]
  - Off label use [Not Recovered/Not Resolved]
  - Fatigue [Unknown]
  - Dizziness [Unknown]
  - Contusion [Unknown]
  - Concomitant disease aggravated [Unknown]
  - Neck pain [Unknown]
  - Back pain [Unknown]
  - Arthralgia [Unknown]
  - Joint swelling [Unknown]
  - Discomfort [Unknown]
  - Tenderness [Unknown]
  - Arthritis [Not Recovered/Not Resolved]
  - Musculoskeletal stiffness [Unknown]
  - Gait disturbance [Unknown]
  - Movement disorder [Unknown]
  - Dysstasia [Unknown]
  - Inappropriate schedule of product administration [Unknown]
  - Drug intolerance [Unknown]
  - Therapeutic response decreased [Unknown]
  - Drug ineffective [Unknown]

NARRATIVE: CASE EVENT DATE: 20191201
